FAERS Safety Report 9146905 (Version 2)
Quarter: 2013Q1

REPORT INFORMATION
  Report Type: Spontaneous
  Country: VE (occurrence: VE)
  Receive Date: 20130307
  Receipt Date: 20130319
  Transmission Date: 20140127
  Serious: Yes (Hospitalization, Other)
  Sender: FDA-Public Use
  Company Number: VE-PFIZER INC-2013077858

PATIENT
  Age: 80 Year
  Sex: Female

DRUGS (2)
  1. CADUET [Suspect]
     Indication: HYPERTENSION
     Dosage: 5/40 MG, 1X/DAY
     Route: 048
     Dates: start: 2010, end: 201212
  2. CADUET [Suspect]
     Indication: HYPERCHOLESTEROLAEMIA

REACTIONS (1)
  - Toxicity to various agents [Recovered/Resolved]
